FAERS Safety Report 9203152 (Version 1)
Quarter: 2013Q1

REPORT INFORMATION
  Report Type: Spontaneous
  Country: US (occurrence: None)
  Receive Date: 20120709
  Receipt Date: 20120709
  Transmission Date: 20140127
  Serious: Yes (Other)
  Sender: FDA-Public Use
  Company Number: PHHY2010US83479

PATIENT
  Age: 77 Year
  Sex: Female
  Weight: 70 kg

DRUGS (5)
  1. GLEEVEC (IMATINIB) UNKNOWN [Suspect]
     Route: 048
  2. PLETAL (CILOSTAZOL) [Concomitant]
  3. PLAVIX (CLOPIDOGREL SULFATE) [Concomitant]
  4. ASPIRIN (ACETYLSALICYLIC ACID ) [Concomitant]
  5. ALEVE /00256202 (NAPROXEN SODIUM) [Concomitant]

REACTIONS (12)
  - Blast crisis in myelogenous leukaemia [None]
  - Platelet count decreased [None]
  - Eye swelling [None]
  - Feeling abnormal [None]
  - Skin hyperpigmentation [None]
  - Skin exfoliation [None]
  - Rash generalised [None]
  - Swelling face [None]
  - Diarrhoea [None]
  - Petechiae [None]
  - White blood cell count increased [None]
  - Pruritus [None]
